FAERS Safety Report 7683337-2 (Version None)
Quarter: 2011Q3

REPORT INFORMATION
  Report Type: 
  Country: None (occurrence: None)
  Receive Date: 20110815
  Receipt Date: 20110808
  Transmission Date: 20111222
  Serious: Yes (Hospitalization, Other)
  Sender: FDA-Public Use
  Company Number: DE-BAYER-2011-002650

PATIENT
  Age: 66 Year
  Sex: Female

DRUGS (8)
  1. NIFEDIPINE [Concomitant]
     Dosage: 5 MG, QD
  2. IBUPROFEN [Concomitant]
     Dosage: 800 MG, QD
  3. SORAFENIB (RAF KINASE INHIBITOR) [Suspect]
     Indication: RENAL CELL CARCINOMA
     Dosage: 400 MG, BID
     Route: 048
     Dates: start: 20101022
  4. SUNITINIB MALATE [Suspect]
     Indication: RENAL CELL CARCINOMA
  5. SIMVASTATIN [Concomitant]
     Dosage: 10 MG, QD
  6. PANTOPRAZOLE [Concomitant]
     Dosage: 40 MG/D
  7. METFORMIN HCL [Concomitant]
     Dosage: 1700 MG, QD
     Dates: end: 20110107
  8. AMITRIPTYLINE HCL [Concomitant]
     Dosage: DAILY DOSE 75 MG

REACTIONS (2)
  - DEEP VEIN THROMBOSIS [None]
  - ARTHRALGIA [None]
